FAERS Safety Report 5956071-4 (Version None)
Quarter: 2008Q4

REPORT INFORMATION
  Report Type: 
  Country: None (occurrence: None)
  Receive Date: 20081118
  Receipt Date: 20081110
  Transmission Date: 20090506
  Serious: Yes (Other)
  Sender: FDA-Public Use
  Company Number: US-JNJFOC-20080805822

PATIENT
  Sex: Male

DRUGS (1)
  1. VIADUR [Suspect]
     Indication: PROSTATE CANCER
     Route: 065

REACTIONS (20)
  - ANXIETY [None]
  - ARTHRALGIA [None]
  - ASTHENIA [None]
  - BASAL CELL CARCINOMA [None]
  - BLINDNESS [None]
  - BREAST MASS [None]
  - BREAST PAIN [None]
  - BREAST TENDERNESS [None]
  - CHEST PAIN [None]
  - DEPRESSION [None]
  - ERECTILE DYSFUNCTION [None]
  - HOT FLUSH [None]
  - INCONTINENCE [None]
  - IRRITABILITY [None]
  - JOINT DISLOCATION [None]
  - MYALGIA [None]
  - NEUROPATHY PERIPHERAL [None]
  - OEDEMA PERIPHERAL [None]
  - TESTICULAR ATROPHY [None]
  - WEIGHT INCREASED [None]
